FAERS Safety Report 21157399 (Version 1)
Quarter: 2022Q3

REPORT INFORMATION
  Report Type: Spontaneous
  Country: US (occurrence: None)
  Receive Date: 20220730
  Receipt Date: 20220730
  Transmission Date: 20221027
  Serious: Yes (Other)
  Sender: FDA-Public Use
  Company Number: None

PATIENT
  Age: 58 Year
  Sex: Female

DRUGS (1)
  1. PACLITAXEL [Suspect]
     Active Substance: PACLITAXEL
     Route: 042

REACTIONS (10)
  - Infusion related reaction [None]
  - Loss of consciousness [None]
  - Eye movement disorder [None]
  - Cyanosis [None]
  - Dysarthria [None]
  - Anaphylactic reaction [None]
  - Respiratory distress [None]
  - Palpitations [None]
  - Hyperhidrosis [None]
  - Syncope [None]

NARRATIVE: CASE EVENT DATE: 20220719
